FAERS Safety Report 7348487-9 (Version None)
Quarter: 2011Q1

REPORT INFORMATION
  Report Type: 
  Country: None (occurrence: None)
  Receive Date: 20110314
  Receipt Date: 20110302
  Transmission Date: 20110831
  Serious: Yes (Hospitalization)
  Sender: FDA-Public Use
  Company Number: BR-ASTRAZENECA-2011SE11706

PATIENT
  Age: 63 Year
  Sex: Female
  Weight: 85 kg

DRUGS (8)
  1. NEXIUM [Suspect]
     Indication: GASTROOESOPHAGEAL REFLUX DISEASE
     Route: 048
     Dates: start: 20090101, end: 20091001
  2. DAFORIN [Concomitant]
     Indication: ANTIDEPRESSANT THERAPY
     Route: 048
  3. DIOVAN [Concomitant]
     Indication: HYPERTENSION
     Route: 048
     Dates: start: 20070101
  4. TEGRETOL [Concomitant]
     Indication: NEURALGIA
     Route: 048
     Dates: start: 20070101
  5. RIVOTRIL [Concomitant]
     Indication: SEDATIVE THERAPY
     Route: 048
  6. NEXIUM [Suspect]
     Indication: HIATUS HERNIA
     Route: 048
     Dates: start: 20090101, end: 20091001
  7. EUTHYROX [Concomitant]
     Indication: HYPOTHYROIDISM
     Route: 048
  8. AMLOFIX [Concomitant]
     Indication: HYPERTENSION
     Route: 048
     Dates: start: 20070101

REACTIONS (3)
  - BENIGN SPLEEN TUMOUR [None]
  - HIATUS HERNIA [None]
  - BENIGN PANCREATIC NEOPLASM [None]
